FAERS Safety Report 23495155 (Version 1)
Quarter: 2024Q1

REPORT INFORMATION
  Report Type: Spontaneous
  Country: US (occurrence: None)
  Receive Date: 20240206
  Receipt Date: 20240206
  Transmission Date: 20240409
  Serious: Yes (Other)
  Sender: FDA-Public Use
  Company Number: None

PATIENT
  Age: 22 Year
  Sex: Female
  Weight: 74.8 kg

DRUGS (1)
  1. FERUMOXYTOL [Suspect]
     Active Substance: FERUMOXYTOL
     Indication: Blood iron decreased
     Dosage: FREQUENCY : ONCE;?
     Route: 042
     Dates: start: 20240205, end: 20240205

REACTIONS (4)
  - Chest pain [None]
  - Urticaria [None]
  - Chills [None]
  - Nausea [None]

NARRATIVE: CASE EVENT DATE: 20240205
